FAERS Safety Report 4505653-5 (Version None)
Quarter: 2004Q4

REPORT INFORMATION
  Report Type: 
  Country: None (occurrence: None)
  Receive Date: 20041119
  Receipt Date: 20041011
  Transmission Date: 20050328
  Serious: Yes (Life-Threatening, Hospitalization)
  Sender: FDA-Public Use
  Company Number: DE-MERCK-0410DEU00298

PATIENT
  Age: 57 Year
  Sex: Male

DRUGS (6)
  1. VIOXX [Suspect]
     Indication: LOCALISED OSTEOARTHRITIS
     Route: 048
     Dates: start: 20011115
  2. VIOXX [Suspect]
     Indication: BACK DISORDER
     Route: 048
     Dates: start: 20011115
  3. PANTOZOL [Concomitant]
     Indication: REFLUX OESOPHAGITIS
     Route: 048
     Dates: start: 20010810
  4. ASPIRIN [Concomitant]
     Indication: VENOUS INSUFFICIENCY
     Route: 048
     Dates: start: 20020418
  5. PROSCAR [Concomitant]
     Indication: BENIGN PROSTATIC HYPERPLASIA
     Route: 048
     Dates: start: 20030930
  6. AVELOX [Concomitant]
     Indication: BRONCHITIS
     Route: 048
     Dates: start: 20040202, end: 20040206

REACTIONS (2)
  - ACUTE MYOCARDIAL INFARCTION [None]
  - CORONARY ARTERY DISEASE [None]
